FAERS Safety Report 10184851 (Version 1)
Quarter: 2014Q2

REPORT INFORMATION
  Report Type: Spontaneous
  Country: US (occurrence: None)
  Receive Date: 20140519
  Receipt Date: 20140519
  Transmission Date: 20141212
  Serious: Yes (Hospitalization)
  Sender: FDA-Public Use
  Company Number: UNT-2014-000112

PATIENT
  Age: 71 Year
  Sex: Male
  Weight: 95.2 kg

DRUGS (2)
  1. TYVASO [Suspect]
     Indication: PULMONARY ARTERIAL HYPERTENSION
     Dosage: 18 BREATHS
     Route: 055
     Dates: start: 20130325
  2. ADCIRCA [Concomitant]

REACTIONS (1)
  - Gangrene [None]
